FAERS Safety Report 9976294 (Version 1)
Quarter: 2014Q1

REPORT INFORMATION
  Report Type: Report from Study
  Country: US (occurrence: US)
  Receive Date: 20140306
  Receipt Date: 20140306
  Transmission Date: 20141002
  Serious: No
  Sender: FDA-Public Use
  Company Number: US-ABBVIE-13P-163-1165572-00

PATIENT
  Age: 48 Year
  Sex: Female

DRUGS (13)
  1. HUMIRA [Suspect]
     Indication: PSORIATIC ARTHROPATHY
     Dates: start: 20131004
  2. TAMBOCOR [Concomitant]
     Indication: HEART RATE INCREASED
  3. LASIX [Concomitant]
     Indication: SWELLING
     Dosage: MONDAY,WEDNESDAY, AND FRIDAYS
  4. LASIX [Concomitant]
     Dosage: TUESDAY,THURSDAY,SATURDAY, AND SUNDAYS
  5. MULTIVITAMIN [Concomitant]
     Indication: PRODUCT USED FOR UNKNOWN INDICATION
     Dosage: DAILY
  6. CALCIUM + VIT D [Concomitant]
     Indication: PRODUCT USED FOR UNKNOWN INDICATION
     Dosage: CHEWABLE
  7. VITAMIN D [Concomitant]
     Indication: PRODUCT USED FOR UNKNOWN INDICATION
  8. LEXAPRO [Concomitant]
     Indication: INSOMNIA
     Dosage: BED TIME
  9. MELATONIN [Concomitant]
     Indication: INSOMNIA
     Dosage: BED TIME
  10. METHOTREXATE [Concomitant]
     Indication: PSORIATIC ARTHROPATHY
     Dosage: 4 IN THE MORNING AND 4 IN THE EVENING ON FRIDAYS
  11. ASPIRIN [Concomitant]
     Indication: PRODUCT USED FOR UNKNOWN INDICATION
     Dosage: 81 MG DAILY
  12. TYLENOL ARTHRITIS [Concomitant]
     Indication: PAIN
  13. IBUPROFEN [Concomitant]
     Indication: PAIN

REACTIONS (3)
  - Fatigue [Not Recovered/Not Resolved]
  - Arthralgia [Not Recovered/Not Resolved]
  - Psoriatic arthropathy [Not Recovered/Not Resolved]
